FAERS Safety Report 6581529-7 (Version None)
Quarter: 2010Q1

REPORT INFORMATION
  Report Type: 
  Country: None (occurrence: None)
  Receive Date: 20100215
  Receipt Date: 20100205
  Transmission Date: 20100710
  Serious: Yes (Hospitalization)
  Sender: FDA-Public Use
  Company Number: FR-MERCK-1002FRA00024

PATIENT
  Age: 60 Year
  Sex: Female

DRUGS (14)
  1. PRIMAXIN [Suspect]
     Route: 042
     Dates: start: 20090828, end: 20090905
  2. MIDAZOLAM HYDROCHLORIDE [Suspect]
     Route: 042
     Dates: start: 20090830, end: 20090911
  3. ESOMEPRAZOLE MAGNESIUM [Suspect]
     Route: 065
     Dates: start: 20090831
  4. SUFENTANIL [Suspect]
     Route: 065
     Dates: start: 20090830, end: 20090905
  5. RAMIPRIL [Suspect]
     Route: 065
     Dates: start: 20090902, end: 20090903
  6. AMIODARONE HYDROCHLORIDE [Suspect]
     Route: 065
     Dates: end: 20090828
  7. ASPIRIN LYSINE [Concomitant]
     Route: 065
     Dates: end: 20090828
  8. METOCLOPRAMIDE HYDROCHLORIDE [Concomitant]
     Route: 065
     Dates: end: 20090828
  9. SPIRAMYCIN [Concomitant]
     Route: 065
     Dates: start: 20090828, end: 20090902
  10. ISOSORBIDE DINITRATE [Concomitant]
     Route: 065
     Dates: start: 20090828, end: 20090829
  11. FUROSEMIDE [Concomitant]
     Route: 065
  12. ROCURONIUM BROMIDE [Concomitant]
     Route: 065
     Dates: start: 20090827, end: 20090831
  13. VANCOMYCIN [Concomitant]
     Route: 065
  14. NOREPINEPHRINE [Concomitant]
     Route: 065

REACTIONS (3)
  - EOSINOPHILIA [None]
  - RASH GENERALISED [None]
  - SHOCK [None]
